FAERS Safety Report 7717340-0 (Version None)
Quarter: 2011Q3

REPORT INFORMATION
  Report Type: 
  Country: None (occurrence: None)
  Receive Date: 20110823
  Receipt Date: 20101008
  Transmission Date: 20111222
  Serious: Yes (Hospitalization, Other)
  Sender: FDA-Public Use
  Company Number: 2010026607

PATIENT
  Age: 48 Year
  Sex: Male
  Weight: 136.0791 kg

DRUGS (20)
  1. ACTOS [Concomitant]
  2. ZEMAIRA [Suspect]
     Indication: ALPHA-1 ANTI-TRYPSIN DEFICIENCY
     Dosage: (8 G 1X/WEEK, 6 MG/KG +/- 10 % WEEKLY INTRAVENOUS (NOT OTHERWISE SPECIFIED))
     Route: 042
     Dates: start: 20101007, end: 20101007
  3. FUROSEMIDE [Concomitant]
  4. VYTORIN [Concomitant]
  5. ALBUTEROL [Concomitant]
  6. DULERA (MOMETASONE) [Concomitant]
  7. ZITHROMAX [Concomitant]
  8. TRICOR [Concomitant]
  9. PANCREASE MT (NORTASE) [Concomitant]
  10. CELEBREX [Concomitant]
  11. PLAQUENIL [Concomitant]
  12. MEDROL (METHYLPREDNISOLONE ACETATE) [Concomitant]
  13. PLAVIX [Concomitant]
  14. GLIMEPIRIDE [Concomitant]
  15. METRONIDAZOLE [Concomitant]
  16. METFORMIN [Concomitant]
  17. SPIRIVA [Concomitant]
  18. VICODIN ES [Concomitant]
  19. AVANDIA [Concomitant]
  20. DYAZIDE [Concomitant]

REACTIONS (2)
  - CHEST PAIN [None]
  - CHEST DISCOMFORT [None]
